FAERS Safety Report 9921896 (Version 2)
Quarter: 2014Q2

REPORT INFORMATION
  Report Type: Spontaneous
  Country: IT (occurrence: IT)
  Receive Date: 20140225
  Receipt Date: 20140602
  Transmission Date: 20141212
  Serious: Yes (Hospitalization)
  Sender: FDA-Public Use
  Company Number: IT-BRISTOL-MYERS SQUIBB COMPANY-20268371

PATIENT
  Age: 81 Year
  Sex: Female

DRUGS (6)
  1. METFORMIN HCL [Suspect]
     Route: 048
     Dates: start: 20130101, end: 20131110
  2. COUMADIN TABS 5 MG [Concomitant]
  3. FUROSEMIDE [Concomitant]
  4. RAMIPRIL [Concomitant]
     Route: 048
  5. BISOPROLOL HEMIFUMARATE [Concomitant]
     Route: 048
  6. ESOMEPRAZOLE [Concomitant]

REACTIONS (1)
  - Metabolic acidosis [Not Recovered/Not Resolved]
